FAERS Safety Report 8524529-X (Version None)
Quarter: 2012Q3

REPORT INFORMATION
  Report Type: 
  Country: None (occurrence: None)
  Receive Date: 20120720
  Receipt Date: 20110808
  Transmission Date: 20120928
  Serious: No
  Sender: FDA-Public Use
  Company Number: US-MYLANLABS-2011S1016673

PATIENT
  Age: 58 Year
  Sex: Male

DRUGS (5)
  1. HYDROCODONE BITARTRATE [Concomitant]
     Indication: PAIN
  2. LISINOPRIL [Concomitant]
     Indication: BLOOD PRESSURE
  3. VENLAFAXINE HYDROCHLORIDE [Suspect]
     Dates: start: 20110707, end: 20110801
  4. PHENERGAN HCL [Concomitant]
  5. VENLAFAXINE HYDROCHLORIDE [Suspect]
     Indication: DEPRESSION
     Dates: start: 20110801

REACTIONS (1)
  - THERAPEUTIC RESPONSE UNEXPECTED [None]
